FAERS Safety Report 7759521-6 (Version None)
Quarter: 2011Q3

REPORT INFORMATION
  Report Type: 
  Country: None (occurrence: None)
  Receive Date: 20110919
  Receipt Date: 20110919
  Transmission Date: 20111222
  Serious: Yes (Hospitalization, Disabling, Other)
  Sender: FDA-Public Use
  Company Number: None

PATIENT
  Age: 79 Year
  Sex: Male
  Weight: 140.61 kg

DRUGS (1)
  1. LYRICA [Suspect]
     Indication: DIABETIC NEUROPATHY
     Dosage: 150 MG
     Route: 048
     Dates: start: 20110426, end: 20110430

REACTIONS (5)
  - FALL [None]
  - MUSCULAR WEAKNESS [None]
  - PAIN [None]
  - ASTHENIA [None]
  - WHEELCHAIR USER [None]
